FAERS Safety Report 7534753-0 (Version None)
Quarter: 2011Q2

REPORT INFORMATION
  Report Type: 
  Country: None (occurrence: None)
  Receive Date: 20110609
  Receipt Date: 20080725
  Transmission Date: 20111010
  Serious: Yes (Death, Hospitalization, Other)
  Sender: FDA-Public Use
  Company Number: PHHY2008GB14668

PATIENT
  Sex: Female

DRUGS (7)
  1. SENNA-MINT WAF [Concomitant]
     Indication: CONSTIPATION
     Dosage: 1 OR 2 TABS NOCTE
  2. AMITRIPTYLINE HYDROCHLORIDE [Concomitant]
     Indication: SEDATION
     Route: 048
  3. ACETAMINOPHEN [Concomitant]
     Indication: PAIN
     Route: 048
  4. OXYBUTYNIN [Concomitant]
     Indication: BLADDER DISORDER
     Route: 048
  5. ASPIRIN [Concomitant]
     Indication: TRANSIENT ISCHAEMIC ATTACK
     Route: 048
  6. CLOZAPINE [Suspect]
     Indication: SCHIZOPHRENIA
     Dates: start: 19971010, end: 20080712
  7. VITAMIN B-12 [Concomitant]
     Indication: ANAEMIA
     Route: 030

REACTIONS (5)
  - GENERAL PHYSICAL HEALTH DETERIORATION [None]
  - CEREBROVASCULAR ACCIDENT [None]
  - PNEUMONIA [None]
  - HIP FRACTURE [None]
  - DEATH [None]
